FAERS Safety Report 8320462-7 (Version None)
Quarter: 2012Q2

REPORT INFORMATION
  Report Type: 
  Country: None (occurrence: None)
  Receive Date: 20120426
  Receipt Date: 20120426
  Transmission Date: 20120825
  Serious: Yes (Hospitalization)
  Sender: FDA-Public Use
  Company Number: None

PATIENT
  Sex: Female
  Weight: 69.5 kg

DRUGS (6)
  1. VITAMIN B-12 [Concomitant]
  2. TAXOTERE [Suspect]
     Dosage: 75 MG
     Dates: end: 20120220
  3. CYCLOPHOSPHAMIDE [Suspect]
     Dosage: 600 MG
     Dates: end: 20120220
  4. CALCIUM AND VITAMIN D [Concomitant]
  5. LASIX [Concomitant]
  6. VITAMIN B6 [Concomitant]

REACTIONS (6)
  - ANAEMIA [None]
  - CHEST PAIN [None]
  - DEEP VEIN THROMBOSIS [None]
  - DYSPNOEA [None]
  - HYPOKALAEMIA [None]
  - PLEURAL EFFUSION [None]
